FAERS Safety Report 4688964-2 (Version None)
Quarter: 2005Q2

REPORT INFORMATION
  Report Type: 
  Country: None (occurrence: None)
  Receive Date: 20050613
  Receipt Date: 20050310
  Transmission Date: 20051028
  Serious: Yes (Other)
  Sender: FDA-Public Use
  Company Number: US-MERCK-0503USA01924

PATIENT
  Age: 48 Year
  Sex: Male
  Weight: 93 kg

DRUGS (19)
  1. VIOXX [Suspect]
     Indication: ARTHRALGIA
     Route: 048
     Dates: start: 20010501, end: 20041001
  2. DAYPRO [Concomitant]
     Route: 065
  3. NAPROXEN [Concomitant]
     Route: 065
  4. ASPIRIN [Concomitant]
     Route: 065
  5. FAMVIR [Concomitant]
     Route: 065
  6. ZOCOR [Concomitant]
     Route: 065
  7. RIDAURA [Concomitant]
     Route: 065
  8. SINGULAIR [Concomitant]
     Route: 065
  9. DEPAKOTE [Concomitant]
     Route: 065
  10. NEXIUM [Concomitant]
     Route: 065
  11. VALTREX [Concomitant]
     Route: 065
  12. ZOLOFT [Concomitant]
     Route: 065
  13. ADVAIR [Concomitant]
     Route: 065
  14. CELEBREX [Concomitant]
     Route: 065
     Dates: start: 20030101, end: 20040101
  15. TOPROL-XL [Concomitant]
     Route: 065
  16. ZYPREXA [Concomitant]
     Route: 065
  17. SPIRIVA [Concomitant]
     Route: 065
  18. COUMADIN [Concomitant]
     Route: 065
  19. ABILIFY [Concomitant]
     Route: 065

REACTIONS (18)
  - ANXIETY [None]
  - BACK INJURY [None]
  - BIPOLAR DISORDER [None]
  - BLOOD CHOLESTEROL INCREASED [None]
  - CARDIAC FAILURE CONGESTIVE [None]
  - CARDIAC VALVE DISEASE [None]
  - CELLULITIS [None]
  - CHRONIC OBSTRUCTIVE PULMONARY DISEASE [None]
  - CONSTIPATION [None]
  - DEPRESSION [None]
  - DYSPEPSIA [None]
  - HEART RATE IRREGULAR [None]
  - HERPES VIRUS INFECTION [None]
  - HYPERTENSION [None]
  - MYOCARDIAL INFARCTION [None]
  - OVERDOSE [None]
  - RHEUMATOID ARTHRITIS [None]
  - SLEEP APNOEA SYNDROME [None]
